FAERS Safety Report 7833986-3 (Version None)
Quarter: 2011Q4

REPORT INFORMATION
  Report Type: 
  Country: None (occurrence: None)
  Receive Date: 20111024
  Receipt Date: 20111012
  Transmission Date: 20120403
  Serious: Yes (Other)
  Sender: FDA-Public Use
  Company Number: CA-SHIRE-ALL1-2011-03758

PATIENT
  Sex: Male
  Weight: 66.6 kg

DRUGS (5)
  1. ELAPRASE [Suspect]
     Dosage: 36 MG, 1X/WEEK(INFUSED OVER 3 HOURS)
     Route: 041
     Dates: start: 20110929
  2. ELAPRASE [Suspect]
     Dosage: 36 MG, 1X/WEEK(INFUSED OVER 3 HOURS)
     Route: 041
     Dates: start: 20110908
  3. ELAPRASE [Suspect]
     Dosage: 36 MG, 1X/WEEK(INFUSED OVER 3 HOURS)
     Route: 041
     Dates: start: 20110922
  4. ELAPRASE [Suspect]
     Indication: MUCOPOLYSACCHARIDOSIS II
     Dosage: 36 MG, 1X/WEEK(INFUSED OVER 3 HOURS)
     Route: 041
     Dates: start: 20110211
  5. ELAPRASE [Suspect]
     Dosage: 36 MG, 1X/WEEK(INFUSED OVER 3 HOURS)
     Route: 041
     Dates: start: 20110915

REACTIONS (6)
  - HYPOAESTHESIA [None]
  - SWELLING FACE [None]
  - INFUSION RELATED REACTION [None]
  - RASH [None]
  - PRURITUS [None]
  - PARAESTHESIA [None]
